FAERS Safety Report 26087896 (Version 1)
Quarter: 2025Q4

REPORT INFORMATION
  Report Type: Spontaneous
  Country: EU (occurrence: EU)
  Receive Date: 20251125
  Receipt Date: 20251125
  Transmission Date: 20260118
  Serious: Yes (Other)
  Sender: PTC THERAPEUTICS
  Company Number: EU-PTC THERAPEUTICS INC.-PT-2025PTC001254

PATIENT
  Age: 52 Year
  Sex: Male

DRUGS (5)
  1. DEFLAZACORT [Suspect]
     Active Substance: DEFLAZACORT
     Indication: Hereditary neuropathic amyloidosis
     Dosage: 30 MG EVERY 2 DAYS
     Route: 065
  2. DEFLAZACORT [Suspect]
     Active Substance: DEFLAZACORT
     Indication: Angioedema
  3. BILASTINE [Concomitant]
     Active Substance: BILASTINE
     Indication: Angioedema
     Dosage: 2 TIMES DAILY DURING FLARES
  4. BILASTINE [Concomitant]
     Active Substance: BILASTINE
     Dosage: 4 TIMES DAILY DURING FLARES
  5. MIRTAZAPINE [Concomitant]
     Active Substance: MIRTAZAPINE
     Indication: Angioedema
     Dosage: 15 MG, QD

REACTIONS (2)
  - Osteoporosis [Unknown]
  - Off label use [Recovered/Resolved]
